FAERS Safety Report 25345383 (Version 1)
Quarter: 2025Q2

REPORT INFORMATION
  Report Type: Spontaneous
  Country: US (occurrence: US)
  Receive Date: 20250522
  Receipt Date: 20250522
  Transmission Date: 20250717
  Serious: Yes (Hospitalization, Other)
  Sender: EXELA PHARMA SCIENCES
  Company Number: US-EXELAPHARMA-2025EXLA00089

PATIENT
  Age: 48 Year
  Sex: Male

DRUGS (7)
  1. TRANEXAMIC ACID [Suspect]
     Active Substance: TRANEXAMIC ACID
     Indication: Pulmonary alveolar haemorrhage
  2. Pulse-dose Steroids [Concomitant]
     Indication: Granulomatosis with polyangiitis
  3. RITUXIMAB [Concomitant]
     Active Substance: RITUXIMAB
     Indication: Granulomatosis with polyangiitis
  4. CYCLOPHOSPHAMIDE [Concomitant]
     Active Substance: CYCLOPHOSPHAMIDE
     Indication: Granulomatosis with polyangiitis
  5. Recombinant Factor VIIa (n-rFVIIa) [Concomitant]
     Indication: Pulmonary alveolar haemorrhage
  6. Recombinant Factor VIIa (n-rFVIIa) [Concomitant]
  7. Recombinant Factor VIIa (n-rFVIIa) [Concomitant]

REACTIONS (1)
  - Drug ineffective for unapproved indication [Recovered/Resolved]
